FAERS Safety Report 15649624 (Version 1)
Quarter: 2018Q4

REPORT INFORMATION
  Report Type: Spontaneous
  Country: NL (occurrence: NL)
  Receive Date: 20181122
  Receipt Date: 20181122
  Transmission Date: 20190205
  Serious: Yes (Other)
  Sender: FDA-Public Use
  Company Number: NL-BAXTER-2018BAX028314

PATIENT
  Sex: Female

DRUGS (2)
  1. TRACYDAL [Suspect]
     Active Substance: TRANYLCYPROMINE SULFATE
     Indication: PRODUCT USED FOR UNKNOWN INDICATION
     Route: 065
  2. BUPIVACAINE HCL CLARIS 5 MG/ML OPLOSSING VOOR INJECTIE [Suspect]
     Active Substance: BUPIVACAINE HYDROCHLORIDE
     Indication: PAIN
     Route: 065

REACTIONS (2)
  - Delirium [Unknown]
  - Potentiating drug interaction [Unknown]
